FAERS Safety Report 10165235 (Version 1)
Quarter: 2014Q2

REPORT INFORMATION
  Report Type: Spontaneous
  Country: US (occurrence: US)
  Receive Date: 20140510
  Receipt Date: 20140510
  Transmission Date: 20141212
  Serious: No
  Sender: FDA-Public Use
  Company Number: US-BRISTOL-MYERS SQUIBB COMPANY-20343406

PATIENT
  Age: 62 Year
  Sex: Female

DRUGS (3)
  1. BYDUREON [Suspect]
     Route: 058
     Dates: start: 201401
  2. NOVOLOG [Concomitant]
  3. LEVEMIR [Concomitant]

REACTIONS (2)
  - Injection site pain [Unknown]
  - Injection site swelling [Unknown]
